FAERS Safety Report 9915014 (Version 2)
Quarter: 2014Q1

REPORT INFORMATION
  Report Type: Report from Study
  Country: CA (occurrence: CA)
  Receive Date: 20140220
  Receipt Date: 20140227
  Transmission Date: 20141002
  Serious: Yes (Other)
  Sender: FDA-Public Use
  Company Number: PHHY2014CA020484

PATIENT
  Sex: Female

DRUGS (15)
  1. CLOZARIL [Suspect]
     Indication: SCHIZOPHRENIA
     Dosage: 400 MG, 50MG-50MG-300MG
     Route: 048
     Dates: start: 20070912
  2. CIPRALEX//ESCITALOPRAM [Concomitant]
     Dosage: 20 MG, QAM
     Dates: start: 20131125
  3. ATIVAN [Concomitant]
     Dosage: 1 MG, Q, MON, WED, FRI, SUN AT BED TIME
     Dates: start: 20131125
  4. AMOXIL//AMOXICILLIN [Concomitant]
     Dosage: 500 MG, TID
     Dates: start: 20131004
  5. CYCLOMEN [Concomitant]
     Dosage: 100 MG, QID
     Dates: start: 20131004
  6. LASIX [Concomitant]
     Dosage: 20 MG, ON MONDAYS AND THURSDAYS ONLY
     Dates: start: 20130807
  7. ALDACTONE [Concomitant]
     Dosage: 12.5 MG, 1/2 TAB ON TUE, FRI AND SUN ONLY
     Dates: start: 20130807
  8. AMIODARONE [Concomitant]
     Dosage: 200 MG, IN MORNING MON, WED AND FRI.
     Route: 048
     Dates: start: 20130724
  9. NITRO-SPRAY [Concomitant]
     Indication: CHEST PAIN
     Dates: start: 20130724
  10. NITRO-SPRAY [Concomitant]
     Indication: DYSPNOEA
  11. METFORMIN [Concomitant]
     Dosage: 1000 MG, BID WITH MEALS
     Dates: start: 20130724
  12. RAMI [Concomitant]
     Dosage: 2.5 MG, AT BEDTIME
     Dates: start: 20130724
  13. LIPTOR [Concomitant]
     Dosage: 40 MG, AT BED TIME
     Dates: start: 20130724
  14. CARVEDILOL [Concomitant]
     Dosage: 3.125 MG, BID
     Dates: start: 20130724
  15. NOVOMIX [Concomitant]
     Dosage: 50 U, 30 U IN THE MORNING AND 20U IN THE EVENING
     Dates: start: 20130724

REACTIONS (2)
  - Electrocardiogram T wave abnormal [Not Recovered/Not Resolved]
  - Myocardial infarction [Not Recovered/Not Resolved]
